FAERS Safety Report 7120603-3 (Version None)
Quarter: 2010Q4

REPORT INFORMATION
  Report Type: 
  Country: None (occurrence: None)
  Receive Date: 20101124
  Receipt Date: 20101118
  Transmission Date: 20110411
  Serious: Yes (Hospitalization)
  Sender: FDA-Public Use
  Company Number: US-US-EMD SERONO, INC.-7028498

PATIENT
  Sex: Male

DRUGS (5)
  1. REBIF [Suspect]
     Indication: MULTIPLE SCLEROSIS
     Route: 058
     Dates: start: 20100201, end: 20100101
  2. REBIF [Suspect]
     Route: 058
     Dates: start: 20100101
  3. ALEVE (CAPLET) [Concomitant]
     Indication: PREMEDICATION
  4. ALEVE (CAPLET) [Concomitant]
     Indication: PAIN
  5. BACLOFEN [Concomitant]
     Indication: PAIN IN EXTREMITY

REACTIONS (3)
  - CENTRAL NERVOUS SYSTEM LESION [None]
  - INTERVERTEBRAL DISC PROTRUSION [None]
  - SCIATICA [None]
